FAERS Safety Report 15346138 (Version 1)
Quarter: 2018Q3

REPORT INFORMATION
  Report Type: Spontaneous
  Country: GB (occurrence: GB)
  Receive Date: 20180904
  Receipt Date: 20180904
  Transmission Date: 20181010
  Serious: Yes (Hospitalization)
  Sender: FDA-Public Use
  Company Number: GB-AUROBINDO-AUR-APL-2018-043932

PATIENT
  Age: 24 Year
  Sex: Female

DRUGS (8)
  1. PROCHLORPERAZINE. [Suspect]
     Active Substance: PROCHLORPERAZINE
     Indication: HYPEREMESIS GRAVIDARUM
     Dosage: UNK
     Route: 042
  2. ONDANSETRON [Suspect]
     Active Substance: ONDANSETRON
     Dosage: UNK
     Route: 042
  3. CYCLIZINE [Suspect]
     Active Substance: CYCLIZINE
     Indication: HYPEREMESIS GRAVIDARUM
     Dosage: UNK
     Route: 042
  4. ONDANSETRON [Suspect]
     Active Substance: ONDANSETRON
     Indication: HYPEREMESIS GRAVIDARUM
     Dosage: SUBCUTANEOUS SYRINGE
     Route: 058
  5. MAGNESIUM SULFATE. [Suspect]
     Active Substance: MAGNESIUM SULFATE
     Indication: FOETAL THERAPEUTIC PROCEDURE
     Dosage: UNK
     Route: 065
  6. HYDROCORTISONE. [Suspect]
     Active Substance: HYDROCORTISONE
     Indication: HYPEREMESIS GRAVIDARUM
     Dosage: FROM THE SIXTH WEEK OF PREGNANCY, SLOWLY WEANED OFF ()
     Route: 042
  7. MIRTAZAPINE. [Suspect]
     Active Substance: MIRTAZAPINE
     Indication: HYPEREMESIS GRAVIDARUM
     Dosage: 30 MILLIGRAM, DAILY
     Route: 048
  8. METOCLOPRAMIDE HYDROCHLORIDE. [Suspect]
     Active Substance: METOCLOPRAMIDE HYDROCHLORIDE
     Indication: HYPEREMESIS GRAVIDARUM
     Dosage: UNK
     Route: 042

REACTIONS (3)
  - Drug ineffective [Unknown]
  - Off label use [Unknown]
  - Exposure during pregnancy [Unknown]
